FAERS Safety Report 7649670-5 (Version None)
Quarter: 2011Q3

REPORT INFORMATION
  Report Type: 
  Country: None (occurrence: None)
  Receive Date: 20110802
  Receipt Date: 20110728
  Transmission Date: 20111222
  Serious: Yes (Other)
  Sender: FDA-Public Use
  Company Number: US-PFIZER INC-2011115330

PATIENT
  Sex: Female

DRUGS (6)
  1. LORAZEPAM [Concomitant]
     Indication: ANXIETY
     Dosage: UNK
     Dates: start: 19840101
  2. HYDROCODONE [Concomitant]
     Indication: ANALGESIC THERAPY
     Dosage: UNK
     Dates: start: 20060101
  3. MEDROXYPROGESTERONE [Concomitant]
     Indication: MENOPAUSE
     Dosage: UNK
     Dates: start: 20060101
  4. CHANTIX [Suspect]
     Indication: SMOKING CESSATION THERAPY
     Dosage: 0.5 MG AND 1 MG
     Dates: start: 20080601, end: 20080701
  5. LOVASTATIN [Concomitant]
     Indication: BLOOD CHOLESTEROL INCREASED
     Dosage: UNK
     Dates: start: 20060101, end: 20090101
  6. LISINOPRIL [Concomitant]
     Indication: HYPERTENSION
     Dosage: UNK
     Dates: start: 20070101

REACTIONS (7)
  - DEPRESSION [None]
  - NIGHTMARE [None]
  - AMNESIA [None]
  - SUICIDAL IDEATION [None]
  - AGGRESSION [None]
  - ANXIETY [None]
  - MENTAL DISORDER [None]
